FAERS Safety Report 9471210 (Version 1)
Quarter: 2013Q3

REPORT INFORMATION
  Report Type: Not Available
  Country: US (occurrence: US)
  Receive Date: 20130822
  Receipt Date: 20130822
  Transmission Date: 20140515
  Serious: No
  Sender: FDA-Public Use
  Company Number: US-TARO-2012P1056188

PATIENT
  Age: 79 Year
  Sex: Female
  Weight: 57.61 kg

DRUGS (2)
  1. TERBINAFINE HCL CREAM 1% (ATHLETES FOOT) [Suspect]
     Indication: FUNGAL INFECTION
     Route: 061
     Dates: start: 20120807, end: 20120821
  2. VITAMINS (UNSPECIFIED) [Concomitant]

REACTIONS (1)
  - Drug ineffective [Not Recovered/Not Resolved]
